FAERS Safety Report 25820127 (Version 7)
Quarter: 2025Q4

REPORT INFORMATION
  Report Type: Report from Study
  Country: JP (occurrence: JP)
  Receive Date: 20250919
  Receipt Date: 20251217
  Transmission Date: 20260118
  Serious: Yes (Hospitalization, Other)
  Sender: ABBVIE
  Company Number: JP-ABBVIE-6461864

PATIENT
  Age: 25 Year
  Sex: Male
  Weight: 56.9 kg

DRUGS (6)
  1. UPADACITINIB [Suspect]
     Active Substance: UPADACITINIB
     Indication: Crohn^s disease
     Route: 048
     Dates: start: 20250616, end: 20250902
  2. UPADACITINIB [Suspect]
     Active Substance: UPADACITINIB
     Indication: Crohn^s disease
     Route: 048
     Dates: start: 20251204
  3. CALCIUM CHLORIDE ANHYDROUS\POTASSIUM CHLORIDE\SODIUM CHLORIDE\SODIUM L [Concomitant]
     Active Substance: CALCIUM CHLORIDE ANHYDROUS\POTASSIUM CHLORIDE\SODIUM CHLORIDE\SODIUM LACTATE
     Indication: Fluid replacement
     Route: 041
     Dates: start: 20250902, end: 20250903
  4. IOPAMIDOL [Concomitant]
     Active Substance: IOPAMIDOL
     Indication: Computerised tomogram
     Dosage: FREQUENCY: ONCE
     Route: 041
     Dates: start: 20250902, end: 20250902
  5. IOPAMIDOL [Concomitant]
     Active Substance: IOPAMIDOL
     Indication: Computerised tomogram
     Route: 041
     Dates: start: 20250904, end: 20250909
  6. IOPAMIDOL [Concomitant]
     Active Substance: IOPAMIDOL
     Indication: Computerised tomogram
     Route: 041
     Dates: start: 20250918, end: 20250919

REACTIONS (3)
  - Appendicitis [Recovered/Resolved]
  - Abscess intestinal [Recovered/Resolved]
  - Intestinal obstruction [Recovered/Resolved]

NARRATIVE: CASE EVENT DATE: 20250902
